FAERS Safety Report 8026926-8 (Version None)
Quarter: 2012Q1

REPORT INFORMATION
  Report Type: 
  Country: None (occurrence: None)
  Receive Date: 20120106
  Receipt Date: 20111230
  Transmission Date: 20120608
  Serious: Yes (Other)
  Sender: FDA-Public Use
  Company Number: CA-JNJFOC-20120100460

PATIENT
  Sex: Male
  Weight: 104 kg

DRUGS (3)
  1. PLENDIL [Concomitant]
     Route: 065
  2. REMICADE [Suspect]
     Indication: PSORIATIC ARTHROPATHY
     Dosage: 3 VIALS AND DUE FOR 56TH INFUSION
     Route: 042
     Dates: start: 20031001
  3. DIOVAN [Concomitant]
     Route: 065

REACTIONS (2)
  - PERIPHERAL EMBOLISM [None]
  - ARRHYTHMIA [None]
